FAERS Safety Report 4430215-8 (Version None)
Quarter: 2004Q3

REPORT INFORMATION
  Report Type: 
  Country: None (occurrence: None)
  Receive Date: 20040820
  Receipt Date: 20040812
  Transmission Date: 20050211
  Serious: Yes (Other)
  Sender: FDA-Public Use
  Company Number: US-JNJFOC-20040804627

PATIENT
  Age: 33 Year
  Sex: Female

DRUGS (5)
  1. RISPERDAL CONSTA [Suspect]
     Route: 030
  2. RISPERDAL CONSTA [Suspect]
     Indication: SCHIZOPHRENIA
     Route: 030
  3. OLANZAPINE [Suspect]
     Indication: SCHIZOPHRENIA
     Route: 049
  4. LITHIUM CARBONATE [Concomitant]
     Route: 049
  5. FLUOXETINE [Concomitant]
     Route: 049

REACTIONS (1)
  - NEUTROPENIA [None]
